FAERS Safety Report 6139589-3 (Version None)
Quarter: 2009Q2

REPORT INFORMATION
  Report Type: 
  Country: None (occurrence: None)
  Receive Date: 20090401
  Receipt Date: 20090324
  Transmission Date: 20091009
  Serious: Yes (Other)
  Sender: FDA-Public Use
  Company Number: BR-PFIZER INC-2007096378

PATIENT

DRUGS (1)
  1. CITALOR [Suspect]
     Indication: BLOOD CHOLESTEROL ABNORMAL
     Route: 048

REACTIONS (4)
  - BLOOD PRESSURE ABNORMAL [None]
  - HEART RATE ABNORMAL [None]
  - MIGRAINE [None]
  - NAUSEA [None]
